FAERS Safety Report 5301820-1 (Version None)
Quarter: 2007Q2

REPORT INFORMATION
  Report Type: 
  Country: None (occurrence: None)
  Receive Date: 20070419
  Receipt Date: 20070410
  Transmission Date: 20071010
  Serious: Yes (Other)
  Sender: FDA-Public Use
  Company Number: PHBS2007KR06240

PATIENT
  Age: 67 Year
  Sex: Female

DRUGS (1)
  1. ZELMAC [Suspect]
     Dosage: UNK, UNK
     Route: 048
     Dates: start: 20060713, end: 20070403

REACTIONS (2)
  - ABASIA [None]
  - MYOCARDIAL ISCHAEMIA [None]
